FAERS Safety Report 8364452-7 (Version None)
Quarter: 2012Q2

REPORT INFORMATION
  Report Type: 
  Country: None (occurrence: None)
  Receive Date: 20120516
  Receipt Date: 20120509
  Transmission Date: 20120825
  Serious: Yes (Hospitalization)
  Sender: FDA-Public Use
  Company Number: US-ALEXION PHARMACEUTICALS INC.-A201200890

PATIENT
  Sex: Female

DRUGS (10)
  1. FERROUS SULFATE TAB [Concomitant]
     Dosage: 325 MG, BID
     Route: 048
  2. SIMVASTATIN [Concomitant]
     Indication: HYPERLIPIDAEMIA
     Dosage: 20 MG, QD
     Route: 048
  3. MULTI-VITAMIN [Concomitant]
     Dosage: UNK, QD
     Route: 048
  4. CYCLOSPORINE [Concomitant]
     Dosage: 25 MG, QD
     Route: 048
  5. FOLIC ACID [Concomitant]
     Dosage: 1 MG, QD
     Route: 048
  6. SOLIRIS [Suspect]
     Indication: PAROXYSMAL NOCTURNAL HAEMOGLOBINURIA
     Dosage: 900 MG, QD
     Route: 042
  7. CALCIUM W/MAGNESIUM [Concomitant]
     Dosage: UNK, QD
     Route: 048
  8. VITAMIN B COMPLEX CAP [Concomitant]
     Dosage: UNK, QD
     Route: 048
  9. SERTRALINE HYDROCHLORIDE [Concomitant]
     Dosage: 50 MG, 1 1/2 TAB QD
     Route: 048
  10. VITAMIN D [Concomitant]
     Dosage: 400 IU, QD
     Route: 048

REACTIONS (6)
  - ARTHRALGIA [None]
  - PYREXIA [None]
  - CHILLS [None]
  - FATIGUE [None]
  - NAUSEA [None]
  - CELLULITIS [None]
